FAERS Safety Report 23713485 (Version 1)
Quarter: 2024Q2

REPORT INFORMATION
  Report Type: Spontaneous
  Country: US (occurrence: US)
  Receive Date: 20240405
  Receipt Date: 20240405
  Transmission Date: 20240715
  Serious: Yes (Other)
  Sender: FDA-Public Use
  Company Number: US-DRL-USA-LIT/USA/24/0005311

PATIENT
  Age: 82 Year
  Sex: Female

DRUGS (7)
  1. CINACALCET [Suspect]
     Active Substance: CINACALCET
     Indication: Hypercalcaemia
     Dosage: 60 MG DAILY
  2. CINACALCET [Suspect]
     Active Substance: CINACALCET
     Dosage: 60 MG TWICE DAILY
  3. CINACALCET [Suspect]
     Active Substance: CINACALCET
     Dosage: 90 MG TWICE DAILY
  4. PAMIDRONATE [Suspect]
     Active Substance: PAMIDRONATE DISODIUM
     Indication: Hypercalcaemia
  5. DEXAMETHASONE [Suspect]
     Active Substance: DEXAMETHASONE
     Indication: Hypercalcaemia
     Dosage: 6 MG DAILY
  6. CALCITONIN [Suspect]
     Active Substance: CALCITONIN
     Indication: Hypercalcaemia
     Dosage: FOR 2 DAYS
     Route: 058
  7. CALCITONIN [Suspect]
     Active Substance: CALCITONIN
     Dosage: 200MG ON DAY 1
     Route: 058

REACTIONS (1)
  - Drug ineffective [Unknown]
